FAERS Safety Report 10225073 (Version 1)
Quarter: 2014Q2

REPORT INFORMATION
  Report Type: Spontaneous
  Country: IT (occurrence: IT)
  Receive Date: 20140609
  Receipt Date: 20140609
  Transmission Date: 20141212
  Serious: Yes (Hospitalization)
  Sender: FDA-Public Use
  Company Number: IT-WATSON-2013-25521

PATIENT
  Age: 82 Year
  Sex: Male

DRUGS (1)
  1. OMEPRAZOLE (UNKNOWN) [Suspect]
     Indication: PRODUCT USED FOR UNKNOWN INDICATION
     Route: 048
     Dates: start: 20130629, end: 20130629

REACTIONS (3)
  - Face oedema [Recovered/Resolved]
  - Laryngeal oedema [Recovered/Resolved]
  - Eye oedema [Recovered/Resolved]
